FAERS Safety Report 14288542 (Version 3)
Quarter: 2018Q1

REPORT INFORMATION
  Report Type: Spontaneous
  Country: UA (occurrence: UA)
  Receive Date: 20171214
  Receipt Date: 20180327
  Transmission Date: 20180509
  Serious: Yes (Life-Threatening, Hospitalization, Other)
  Sender: FDA-Public Use
  Company Number: UA-GLAXOSMITHKLINE-UA2017GSK178792

PATIENT
  Age: 69 Year
  Sex: Female
  Weight: 72 kg

DRUGS (2)
  1. FLIXOTIDE [Suspect]
     Active Substance: FLUTICASONE PROPIONATE
     Indication: ASTHMA
     Route: 055
  2. BERODUAL [Concomitant]
     Active Substance: FENOTEROL HYDROBROMIDE\IPRATROPIUM BROMIDE
     Indication: PRODUCT USED FOR UNKNOWN INDICATION
     Dosage: 1 DF, BID
     Route: 055

REACTIONS (21)
  - Mitral valve stenosis [Unknown]
  - Cardiac failure chronic [Unknown]
  - Aortic valve incompetence [Unknown]
  - Disease complication [Unknown]
  - Condition aggravated [Unknown]
  - Pancreatitis [Unknown]
  - Gastritis erosive [Unknown]
  - Hypertension [Unknown]
  - Rheumatic disorder [Unknown]
  - Aortic valve disease [Unknown]
  - Basedow^s disease [Unknown]
  - Pyelonephritis chronic [Unknown]
  - Peripheral venous disease [Unknown]
  - Tricuspid valve incompetence [Unknown]
  - Cholestasis [Unknown]
  - Anamnestic reaction [Unknown]
  - Respiratory failure [Unknown]
  - Myocardial fibrosis [Unknown]
  - Atrial fibrillation [Unknown]
  - Myocardial ischaemia [Unknown]
  - Goitre [Unknown]

NARRATIVE: CASE EVENT DATE: 20171002
